FAERS Safety Report 4421034-7 (Version None)
Quarter: 2004Q3

REPORT INFORMATION
  Report Type: 
  Country: None (occurrence: None)
  Receive Date: 20040809
  Receipt Date: 20040729
  Transmission Date: 20050211
  Serious: Yes (Other)
  Sender: FDA-Public Use
  Company Number: PT-GLAXOSMITHKLINE-B0341582A

PATIENT
  Age: 38 Year
  Sex: Male

DRUGS (1)
  1. RANITIDINE HYDROCHLORIDE [Suspect]
     Indication: DYSPEPSIA
     Dosage: 300MG PER DAY
     Route: 048
     Dates: start: 19981028, end: 19981031

REACTIONS (5)
  - ALANINE AMINOTRANSFERASE INCREASED [None]
  - ASPARTATE AMINOTRANSFERASE INCREASED [None]
  - CHOLURIA [None]
  - HEPATITIS [None]
  - JAUNDICE [None]
